FAERS Safety Report 23815837 (Version 1)
Quarter: 2024Q2

REPORT INFORMATION
  Report Type: Spontaneous
  Country: US (occurrence: US)
  Receive Date: 20240503
  Receipt Date: 20240503
  Transmission Date: 20240716
  Serious: Yes (Death)
  Sender: FDA-Public Use
  Company Number: US-FMCRTG-FMC-2404-000452

PATIENT
  Age: 101 Year
  Sex: Female
  Weight: 67.5 kg

DRUGS (3)
  1. DELFLEX [Suspect]
     Active Substance: CALCIUM CHLORIDE\DEXTROSE\MAGNESIUM CHLORIDE\SODIUM CHLORIDE\SODIUM LACTATE
     Indication: End stage renal disease
     Dosage: 7 TIMES A WEEK, CA 2.5 (MEQ/L) MG 0.5 (MEQ/L), EXCHANGES 4, FILL VOL 2000 ML CYC THERAPY VOL 8000 ML
     Route: 033
  2. DELFLEX WITH DEXTROSE 2.5% LOW MAGNESIUM LOW CALCIUM [Suspect]
     Active Substance: CALCIUM CHLORIDE\DEXTROSE\MAGNESIUM CHLORIDE\SODIUM CHLORIDE\SODIUM LACTATE
     Indication: End stage renal disease
     Dosage: 7 TIMES A WEEK, CA 2.5 (MEQ/L) MG 0.5 (MEQ/L), EXCHANGES 4, FILL VOL 2000 ML CYC THERAPY VOL 8000 ML
     Route: 033
  3. DELFLEX WITH DEXTROSE 4.25% LOW MAGNESIUM LOW CALCIUM [Suspect]
     Active Substance: CALCIUM CHLORIDE\DEXTROSE\MAGNESIUM CHLORIDE\SODIUM CHLORIDE\SODIUM LACTATE
     Indication: End stage renal disease
     Dosage: 7 TIMES A WEEK, CA 2.5 (MEQ/L) MG 0.5 (MEQ/L), EXCHANGES 4, FILL VOL 2000 ML CYC THERAPY VOL 8000 ML
     Route: 033

REACTIONS (1)
  - Cardiac arrest [Fatal]

NARRATIVE: CASE EVENT DATE: 20240415
